FAERS Safety Report 5344880-4 (Version None)
Quarter: 2007Q2

REPORT INFORMATION
  Report Type: 
  Country: None (occurrence: None)
  Receive Date: 20070416
  Receipt Date: 20070118
  Transmission Date: 20071010
  Serious: No
  Sender: FDA-Public Use
  Company Number: 2007SP000210

PATIENT
  Age: 57 Year
  Sex: Female
  Weight: 91.6266 kg

DRUGS (6)
  1. LUNESTA [Suspect]
     Indication: FIBROMYALGIA
     Dosage: 3 MG;ORAL
     Route: 048
     Dates: start: 20070116
  2. LUNESTA [Suspect]
     Indication: INSOMNIA
     Dosage: 3 MG;ORAL
     Route: 048
     Dates: start: 20070116
  3. CYMBALTA [Concomitant]
  4. ALTACE [Concomitant]
  5. VICODIN [Concomitant]
  6. OMEPRAZOLE [Concomitant]

REACTIONS (1)
  - DYSGEUSIA [None]
